FAERS Safety Report 10396691 (Version 1)
Quarter: 2014Q3

REPORT INFORMATION
  Report Type: Spontaneous
  Country: US (occurrence: US)
  Receive Date: 20140820
  Receipt Date: 20140820
  Transmission Date: 20150326
  Serious: Yes (Other)
  Sender: FDA-Public Use
  Company Number: US-GLAXOSMITHKLINE-A1084997A

PATIENT
  Age: 54 Year
  Sex: Female

DRUGS (7)
  1. ANTIBIOTICS [Concomitant]
     Active Substance: UNSPECIFIED INGREDIENT
  2. STEROIDS [Concomitant]
     Active Substance: UNSPECIFIED INGREDIENT
  3. VICKS VAPOR RUB [Concomitant]
  4. MEDROL [Concomitant]
     Active Substance: METHYLPREDNISOLONE
  5. ADVAIR HFA [Suspect]
     Active Substance: FLUTICASONE PROPIONATE\SALMETEROL XINAFOATE
     Indication: ASTHMA
     Dosage: 1PUFF TWICE PER DAY
     Route: 055
  6. NEBULIZER [Concomitant]
     Active Substance: UNSPECIFIED INGREDIENT
  7. PREDNISONE. [Concomitant]
     Active Substance: PREDNISONE

REACTIONS (12)
  - Pulmonary fibrosis [Unknown]
  - Myringotomy [Unknown]
  - Loss of employment [Unknown]
  - Ear infection [Unknown]
  - Cardiomegaly [Unknown]
  - Emergency care examination [Unknown]
  - Pneumonia [Unknown]
  - Dyspnoea [Unknown]
  - Pneumothorax [Unknown]
  - Myocardial necrosis marker increased [Unknown]
  - Drug dose omission [Unknown]
  - Asthma [Unknown]

NARRATIVE: CASE EVENT DATE: 201108
